FAERS Safety Report 9234632 (Version 1)
Quarter: 2013Q2

REPORT INFORMATION
  Report Type: Report from Study
  Country: US (occurrence: US)
  Receive Date: 20130416
  Receipt Date: 20130416
  Transmission Date: 20140414
  Serious: No
  Sender: FDA-Public Use
  Company Number: US-VERTEX PHARMACEUTICALS INC.-2013-004835

PATIENT
  Sex: Female
  Weight: 61 kg

DRUGS (13)
  1. VX-950 (TELAPREVIR) [Suspect]
     Indication: HEPATITIS C
     Dosage: 750 MG, TID
     Route: 048
     Dates: start: 2013, end: 201304
  2. PEGASYS [Suspect]
     Indication: HEPATITIS C
     Dosage: 180 ?G, QW
     Route: 058
     Dates: start: 2013, end: 201304
  3. RIBASPHERE [Suspect]
     Indication: HEPATITIS C
     Dosage: 600 MG IN AM, 400 MG IN PM
     Route: 048
     Dates: start: 2013, end: 201304
  4. LEVOTHYROXINE [Concomitant]
     Dosage: 1 DF, QD
     Route: 048
  5. IBUPROFEN [Concomitant]
     Dosage: 1 DF, QD
     Route: 048
  6. COMBIVENT [Concomitant]
     Dosage: 1 DOSE, PRN
  7. CALCIUM + VITAMIN D [Concomitant]
     Dosage: 1 DF, QD
     Route: 048
  8. PROAIR HFA [Concomitant]
     Dosage: 1 DOSE, PRN
  9. VESICARE [Concomitant]
     Dosage: 1 DF, QD
     Route: 048
  10. DONNATAL [Concomitant]
     Dosage: 1 DF, PRN
     Route: 048
  11. SINGULAIR [Concomitant]
     Dosage: 1 DF, QD
     Route: 048
  12. SERTRALINE                         /01011402/ [Concomitant]
     Dosage: 1 DF, QD
     Route: 048
  13. NEXIUM                             /01479302/ [Concomitant]
     Dosage: 1 DF, QD
     Route: 048

REACTIONS (1)
  - Rash [Unknown]
